FAERS Safety Report 18220471 (Version 1)
Quarter: 2020Q3

REPORT INFORMATION
  Report Type: Spontaneous
  Country: FR (occurrence: FR)
  Receive Date: 20200902
  Receipt Date: 20200902
  Transmission Date: 20201103
  Serious: Yes (Other)
  Sender: FDA-Public Use
  Company Number: FR-ROCHE-2666754

PATIENT
  Age: 54 Year
  Sex: Male

DRUGS (1)
  1. ALECENSA [Suspect]
     Active Substance: ALECTINIB HYDROCHLORIDE
     Indication: LUNG NEOPLASM MALIGNANT
     Route: 065

REACTIONS (10)
  - Skin burning sensation [Recovering/Resolving]
  - Limb discomfort [Unknown]
  - Paraesthesia [Unknown]
  - Pulmonary embolism [Unknown]
  - Feeling cold [Unknown]
  - Headache [Unknown]
  - Thrombosis [Unknown]
  - Constipation [Unknown]
  - Myalgia [Unknown]
  - Neuralgia [Unknown]
